FAERS Safety Report 7335499-4 (Version None)
Quarter: 2011Q1

REPORT INFORMATION
  Report Type: 
  Country: None (occurrence: None)
  Receive Date: 20110307
  Receipt Date: 20110225
  Transmission Date: 20110831
  Serious: Yes (Hospitalization)
  Sender: FDA-Public Use
  Company Number: JP-AMGEN-JPNCT2010007477

PATIENT
  Age: 77 Year
  Sex: Male
  Weight: 67 kg

DRUGS (12)
  1. CALCIUM LEVOFOLINATE [Concomitant]
     Indication: COLORECTAL CANCER
     Route: 041
     Dates: start: 20100811, end: 20100813
  2. KYTRIL [Concomitant]
     Dosage: UNK
     Route: 048
  3. OXALIPLATIN [Suspect]
     Indication: COLORECTAL CANCER
     Route: 041
     Dates: start: 20100811, end: 20100813
  4. LOCHOL [Concomitant]
     Indication: HYPERCHOLESTEROLAEMIA
     Dosage: UNK
     Route: 048
  5. FLUOROURACIL [Concomitant]
     Indication: COLORECTAL CANCER
     Route: 041
     Dates: start: 20100811, end: 20100813
  6. NORVASC [Concomitant]
     Dosage: UNK
     Route: 048
  7. FLUOROURACIL [Concomitant]
     Dosage: 700 MG, UNK
     Route: 040
     Dates: start: 20100811, end: 20100813
  8. GRANISETRON HCL [Concomitant]
     Dosage: UNK
     Route: 041
  9. LOCHOL [Concomitant]
     Route: 048
  10. PANITUMUMAB [Suspect]
     Indication: COLORECTAL CANCER
     Dosage: 6 MG/KG, Q2WK
     Route: 041
     Dates: start: 20100811, end: 20100811
  11. CORTICOSTEROIDS [Concomitant]
     Indication: PROPHYLAXIS
     Dosage: UNK
     Route: 065
  12. CELECTOL [Concomitant]
     Dosage: UNK
     Route: 048

REACTIONS (3)
  - DYSGEUSIA [None]
  - PHARYNGITIS [None]
  - STOMATITIS [None]
